FAERS Safety Report 5318621-0 (Version None)
Quarter: 2007Q2

REPORT INFORMATION
  Report Type: 
  Country: None (occurrence: None)
  Receive Date: 20070508
  Receipt Date: 20070430
  Transmission Date: 20071010
  Serious: Yes (Hospitalization, Other)
  Sender: FDA-Public Use
  Company Number: PHEH2007US06019

PATIENT
  Age: 37 Year
  Sex: Female
  Weight: 104.31 kg

DRUGS (6)
  1. ZELNORM [Suspect]
     Indication: CONSTIPATION
     Dosage: 6 MG, PRN
     Route: 048
     Dates: start: 20061001, end: 20070301
  2. ZELNORM [Suspect]
     Dosage: 6 MG, UNK
     Route: 048
     Dates: start: 20050101, end: 20061001
  3. ASCORBIC ACID [Concomitant]
     Indication: ASTHENIA
     Dosage: 1 TAB, UNK
     Route: 048
  4. VITAMIN E [Concomitant]
     Indication: ASTHENIA
     Dosage: 1TABLET, QD
     Route: 048
  5. VITAMIN B-12 [Concomitant]
     Indication: ASTHENIA
     Dosage: 1 TABLET, QD
     Route: 048
  6. VENTOLIN [Concomitant]
     Indication: ASTHMA
     Dosage: UNK, PRN

REACTIONS (5)
  - ASTHENIA [None]
  - DIARRHOEA [None]
  - LIGAMENT RUPTURE [None]
  - NAUSEA [None]
  - VOMITING [None]
